FAERS Safety Report 4293546-0 (Version None)
Quarter: 2004Q1

REPORT INFORMATION
  Report Type: 
  Country: None (occurrence: None)
  Receive Date: 20040212
  Receipt Date: 20030701
  Transmission Date: 20041129
  Serious: No
  Sender: FDA-Public Use
  Company Number: US-GLAXOSMITHKLINE-A0414777A

PATIENT
  Age: 59 Year
  Sex: Female

DRUGS (7)
  1. PAXIL [Suspect]
     Dosage: 40MG PER DAY
     Route: 048
     Dates: start: 20030627
  2. PAXIL CR [Suspect]
     Dosage: 25MG PER DAY
     Route: 048
     Dates: start: 20030627
  3. NEURONTIN [Concomitant]
  4. SYNTHROID [Concomitant]
  5. LOTENSIN [Concomitant]
  6. NEXIUM [Concomitant]
  7. CLARINEX [Concomitant]

REACTIONS (1)
  - IRRITABILITY [None]
